FAERS Safety Report 13424964 (Version 1)
Quarter: 2017Q2

REPORT INFORMATION
  Report Type: Spontaneous
  Country: US (occurrence: US)
  Receive Date: 20170410
  Receipt Date: 20170410
  Transmission Date: 20170830
  Serious: No
  Sender: FDA-Public Use
  Company Number: US-009507513-1704USA003367

PATIENT
  Sex: Male

DRUGS (2)
  1. ZEPATIER [Suspect]
     Active Substance: ELBASVIR\GRAZOPREVIR
     Indication: HEPATITIS B
     Route: 048
  2. RIBAVIRIN (WARRICK) [Suspect]
     Active Substance: RIBAVIRIN
     Route: 048

REACTIONS (2)
  - Product use in unapproved indication [Unknown]
  - Hepatitis B DNA decreased [Unknown]
